FAERS Safety Report 11246368 (Version 1)
Quarter: 2015Q3

REPORT INFORMATION
  Report Type: Spontaneous
  Country: US (occurrence: US)
  Receive Date: 20150708
  Receipt Date: 20150708
  Transmission Date: 20151125
  Serious: Yes (Other)
  Sender: FDA-Public Use
  Company Number: US-PFIZER INC-2015219837

PATIENT
  Age: 77 Year
  Sex: Female

DRUGS (2)
  1. FASLODEX [Suspect]
     Active Substance: FULVESTRANT
     Indication: BREAST CANCER
     Dosage: UNK
     Dates: start: 20150615
  2. IBRANCE [Suspect]
     Active Substance: PALBOCICLIB
     Indication: BREAST CANCER
     Dosage: 125 MG, CYCLIC (TAKE 1CAPSULE BY MOUTH DAILY FOR 21 DAYS AND 1 WEEK OFF)
     Route: 048
     Dates: start: 20150615

REACTIONS (5)
  - Joint swelling [Unknown]
  - Disease progression [Unknown]
  - Hip fracture [Unknown]
  - Blood triglycerides increased [Unknown]
  - Breast cancer [Unknown]

NARRATIVE: CASE EVENT DATE: 20150629
